FAERS Safety Report 5493683-9 (Version None)
Quarter: 2007Q4

REPORT INFORMATION
  Report Type: 
  Country: None (occurrence: None)
  Receive Date: 20071015
  Receipt Date: 20070831
  Transmission Date: 20080405
  Serious: No
  Sender: FDA-Public Use
  Company Number: 2007SP003065

PATIENT
  Age: 59 Year
  Sex: Male
  Weight: 72.5755 kg

DRUGS (6)
  1. LUNESTA [Suspect]
     Indication: INSOMNIA
     Dosage: 3 MG; HS; ORAL
     Route: 048
     Dates: start: 20070830
  2. KLONOPIN [Suspect]
     Indication: INSOMNIA
     Dosage: 10 MG; HS; ORAL, 1 MG; HS; ORAL, 0.5 MG; 1X; ORAL
     Route: 048
     Dates: end: 20070829
  3. KLONOPIN [Suspect]
     Indication: INSOMNIA
     Dosage: 10 MG; HS; ORAL, 1 MG; HS; ORAL, 0.5 MG; 1X; ORAL
     Route: 048
     Dates: start: 20070830, end: 20070901
  4. KLONOPIN [Suspect]
     Indication: INSOMNIA
     Dosage: 10 MG; HS; ORAL, 1 MG; HS; ORAL, 0.5 MG; 1X; ORAL
     Route: 048
     Dates: start: 20070903, end: 20070903
  5. LOTENSIN [Concomitant]
  6. ATORVASTATIN CALCIUM [Concomitant]

REACTIONS (3)
  - DRUG INEFFECTIVE [None]
  - MIDDLE INSOMNIA [None]
  - PARASOMNIA [None]
